FAERS Safety Report 16485560 (Version 1)
Quarter: 2019Q2

REPORT INFORMATION
  Report Type: Spontaneous
  Country: US (occurrence: US)
  Receive Date: 20190517
  Receipt Date: 20190517
  Transmission Date: 20190711
  Serious: No
  Sender: FDA-Public Use
  Company Number: None

PATIENT
  Age: 51 Year
  Sex: Female

DRUGS (1)
  1. MYCOPHENOLATE 500MG ACCORD HEALTHCARE [Suspect]
     Active Substance: MYCOPHENOLATE MOFETIL
     Indication: DERMATOMYOSITIS
     Dosage: 500-2000 MG DAILY TWICE DAILY ORAL
     Route: 048
     Dates: start: 20190419, end: 201904

REACTIONS (4)
  - Headache [None]
  - Drug hypersensitivity [None]
  - Gastric disorder [None]
  - Rash [None]

NARRATIVE: CASE EVENT DATE: 201904
